FAERS Safety Report 5969264-7 (Version None)
Quarter: 2008Q4

REPORT INFORMATION
  Report Type: 
  Country: None (occurrence: None)
  Receive Date: 20081126
  Receipt Date: 20080825
  Transmission Date: 20090506
  Serious: No
  Sender: FDA-Public Use
  Company Number: US-ABBOTT-08P-163-0472328-00

PATIENT
  Sex: Female
  Weight: 70.37 kg

DRUGS (4)
  1. SIMCOR [Suspect]
     Indication: BLOOD CHOLESTEROL INCREASED
     Route: 048
     Dates: start: 20080804
  2. DIOVAN HCT [Concomitant]
     Indication: BLOOD PRESSURE
     Dosage: 160/12.5 MG
     Route: 048
  3. ESTROGENMETHEST [Concomitant]
     Indication: OESTROGEN REPLACEMENT THERAPY
     Dosage: .625/1.25 MG
     Route: 048
  4. LEVOTHYROXINE SODIUM [Concomitant]
     Indication: HORMONE REPLACEMENT THERAPY
     Route: 048

REACTIONS (4)
  - DIARRHOEA [None]
  - NAUSEA [None]
  - NECK PAIN [None]
  - TENDERNESS [None]
